FAERS Safety Report 7441462-5 (Version None)
Quarter: 2011Q2

REPORT INFORMATION
  Report Type: 
  Country: None (occurrence: None)
  Receive Date: 20110418
  Receipt Date: 20100923
  Transmission Date: 20111010
  Serious: Yes (Disabling, Other)
  Sender: FDA-Public Use
  Company Number: APP201000732

PATIENT
  Age: 44 Year
  Sex: Male
  Weight: 107.5025 kg

DRUGS (9)
  1. DONJOY PAINBUSTER PAIN [Suspect]
     Indication: MUSCULOSKELETAL PAIN
     Dates: start: 20030715
  2. ANCEF [Concomitant]
  3. SENSORCAINE [Suspect]
     Indication: MUSCULOSKELETAL PAIN
     Dosage: INTRA-ARTICULAR
     Route: 014
     Dates: start: 20030715
  4. LORTAB (VICODIN) [Concomitant]
  5. ANESTHETIC (ANESTHETICS) [Suspect]
     Indication: MUSCULOSKELETAL PAIN
     Dosage: CONTINUOUS VIA PUMP, INTRA-ARTICULAR
     Route: 014
     Dates: start: 20031009
  6. CORTISONE INJECTIONS (CORTISONE) [Concomitant]
  7. XYLOCAINE W/ EPINEPHRENE [Suspect]
     Indication: PREMEDICATION
     Dates: start: 20031009
  8. XYLOCAINE W/ EPINEPHRENE [Suspect]
     Indication: PREMEDICATION
     Dates: start: 20030715
  9. PAIN PUMP [Suspect]
     Indication: MUSCULOSKELETAL PAIN
     Dates: start: 20031009

REACTIONS (4)
  - OSTEOARTHRITIS [None]
  - MUSCULOSKELETAL PAIN [None]
  - CHONDROLYSIS [None]
  - POSTOPERATIVE ADHESION [None]
